FAERS Safety Report 18181226 (Version 1)
Quarter: 2020Q3

REPORT INFORMATION
  Report Type: Spontaneous
  Country: DK (occurrence: DK)
  Receive Date: 20200821
  Receipt Date: 20200821
  Transmission Date: 20201103
  Serious: Yes (Hospitalization)
  Sender: FDA-Public Use
  Company Number: DK-ASTRAZENECA-2020SF04561

PATIENT
  Age: 46 Year
  Sex: Male
  Weight: 113 kg

DRUGS (4)
  1. BRILIQUE [Suspect]
     Active Substance: TICAGRELOR
     Route: 048
  2. SEMAGLUTIDE [Suspect]
     Active Substance: SEMAGLUTIDE
     Indication: OBESITY
     Route: 058
  3. SEMAGLUTIDE [Suspect]
     Active Substance: SEMAGLUTIDE
     Indication: CARDIOVASCULAR DISORDER
     Route: 058
  4. ASPIRIN. [Concomitant]
     Active Substance: ASPIRIN

REACTIONS (3)
  - Chest discomfort [Unknown]
  - Gastric pH decreased [Recovered/Resolved]
  - Hyperchlorhydria [Unknown]

NARRATIVE: CASE EVENT DATE: 20200217
